FAERS Safety Report 17815510 (Version 1)
Quarter: 2020Q2

REPORT INFORMATION
  Report Type: Spontaneous
  Country: US (occurrence: US)
  Receive Date: 20200521
  Receipt Date: 20200521
  Transmission Date: 20200714
  Serious: Yes (Disabling)
  Sender: FDA-Public Use
  Company Number: None

PATIENT
  Age: 32 Year
  Sex: Female
  Weight: 63 kg

DRUGS (6)
  1. CENTRUM WOMENS MUTIVITAMIN [Concomitant]
  2. VITAMIN D [Concomitant]
     Active Substance: VITAMIN D NOS
  3. TUMERIC [Concomitant]
     Active Substance: HERBALS\TURMERIC
  4. CURCUMIN [Concomitant]
     Active Substance: CURCUMIN
  5. DEXTROAMPHET SACCHARAT, AMPHET ASPARTATE, DEXTROAMPHET SULFATE AND AMPHET SULFAT [Suspect]
     Active Substance: AMPHETAMINE ASPARTATE\AMPHETAMINE SULFATE\DEXTROAMPHETAMINE SACCHARATE\DEXTROAMPHETAMINE SULFATE
     Indication: ATTENTION DEFICIT HYPERACTIVITY DISORDER
     Dosage: QUANTITY:1 TABLET(S);?
     Route: 048
     Dates: start: 20200427, end: 20200508
  6. BUPROPION XL [Concomitant]
     Active Substance: BUPROPION

REACTIONS (8)
  - Drug ineffective [None]
  - Disturbance in attention [None]
  - Anxiety [None]
  - Suspected product quality issue [None]
  - Insomnia [None]
  - Paranoia [None]
  - Irritability [None]
  - Tremor [None]

NARRATIVE: CASE EVENT DATE: 20200427
